FAERS Safety Report 9085254 (Version 1)
Quarter: 2013Q1

REPORT INFORMATION
  Report Type: Spontaneous
  Country: US (occurrence: US)
  Receive Date: 20130218
  Receipt Date: 20130218
  Transmission Date: 20140127
  Serious: No
  Sender: FDA-Public Use
  Company Number: US-BAYER-2013-019178

PATIENT
  Sex: Female

DRUGS (1)
  1. GIANVI [Suspect]
     Dosage: UNK
     Route: 048

REACTIONS (4)
  - Metrorrhagia [None]
  - Nausea [None]
  - Malaise [None]
  - Abdominal pain [None]
